FAERS Safety Report 8819368 (Version 1)
Quarter: 2012Q4

REPORT INFORMATION
  Report Type: Spontaneous
  Country: PL (occurrence: None)
  Receive Date: 20121003
  Receipt Date: 20121003
  Transmission Date: 20130627
  Serious: Yes (Other)
  Sender: FDA-Public Use
  Company Number: FK201202744

PATIENT
  Age: 71 Year
  Sex: Male

DRUGS (1)
  1. PAMIDRONATE [Suspect]

REACTIONS (4)
  - Focal segmental glomerulosclerosis [None]
  - Renal tubular atrophy [None]
  - Kidney fibrosis [None]
  - Haemodialysis [None]
